FAERS Safety Report 16806336 (Version 1)
Quarter: 2019Q3

REPORT INFORMATION
  Report Type: Spontaneous
  Country: IT (occurrence: IT)
  Receive Date: 20190913
  Receipt Date: 20190913
  Transmission Date: 20191005
  Serious: Yes (Other)
  Sender: FDA-Public Use
  Company Number: IT-ABBVIE-19K-083-2922470-00

PATIENT
  Sex: Male

DRUGS (1)
  1. SEVORANE [Suspect]
     Active Substance: SEVOFLURANE
     Indication: SURGERY
     Route: 055
     Dates: start: 201908, end: 201908

REACTIONS (3)
  - Unwanted awareness during anaesthesia [Recovered/Resolved]
  - Drug ineffective [Recovered/Resolved]
  - Device issue [Unknown]

NARRATIVE: CASE EVENT DATE: 201908
